FAERS Safety Report 21157742 (Version 1)
Quarter: 2022Q3

REPORT INFORMATION
  Report Type: Report from Study
  Country: FR (occurrence: FR)
  Receive Date: 20220801
  Receipt Date: 20220801
  Transmission Date: 20221027
  Serious: Yes (Death, Other)
  Sender: FDA-Public Use
  Company Number: FR-BRISTOL-MYERS SQUIBB COMPANY-BMS-2021-105988

PATIENT
  Age: 55 Year
  Sex: Male
  Weight: 87 kg

DRUGS (3)
  1. NIVOLUMAB [Suspect]
     Active Substance: NIVOLUMAB
     Indication: Malignant melanoma
     Dosage: 94 MILLIGRAM
     Route: 042
     Dates: start: 20211008, end: 20211018
  2. IPILIMUMAB [Suspect]
     Active Substance: IPILIMUMAB
     Indication: Malignant melanoma
     Dosage: 282 MILLIGRAM
     Route: 042
     Dates: start: 20211008, end: 20211018
  3. CERTOLIZUMAB [Suspect]
     Active Substance: CERTOLIZUMAB
     Indication: Malignant melanoma
     Dosage: 400 MILLIGRAM
     Route: 058
     Dates: start: 20211008, end: 20211018

REACTIONS (1)
  - Hepatic cytolysis [Fatal]

NARRATIVE: CASE EVENT DATE: 20211008
